FAERS Safety Report 15833464 (Version 5)
Quarter: 2019Q2

REPORT INFORMATION
  Report Type: Spontaneous
  Country: DE (occurrence: DE)
  Receive Date: 20190116
  Receipt Date: 20190512
  Transmission Date: 20190711
  Serious: Yes (Death, Hospitalization)
  Sender: FDA-Public Use
  Company Number: PHHY2018DE177809

PATIENT
  Sex: Female
  Weight: 67 kg

DRUGS (3)
  1. FEMARA [Suspect]
     Active Substance: LETROZOLE
     Indication: BREAST CANCER
     Dosage: 2.5 MG, QD
     Route: 048
     Dates: start: 20180526, end: 20180914
  2. TYVERB [Suspect]
     Active Substance: LAPATINIB
     Indication: BREAST CANCER
     Dosage: 1000 MG, QD
     Route: 048
     Dates: start: 20180723, end: 20180730
  3. LETROZOLE. [Suspect]
     Active Substance: LETROZOLE
     Indication: BREAST CANCER
     Dosage: 2.5 MG, QD
     Route: 048
     Dates: start: 20181112, end: 20181119

REACTIONS (11)
  - Jaundice [Unknown]
  - Cholestasis [Unknown]
  - Breast cancer metastatic [Fatal]
  - Metastases to liver [Fatal]
  - Abdominal pain [Unknown]
  - Diarrhoea [Recovered/Resolved]
  - Rash [Recovered/Resolved]
  - Pruritus [Unknown]
  - Hepatic failure [Fatal]
  - Hepatitis cholestatic [Unknown]
  - Nausea [Unknown]

NARRATIVE: CASE EVENT DATE: 2018
